FAERS Safety Report 22032208 (Version 3)
Quarter: 2023Q2

REPORT INFORMATION
  Report Type: Report from Study
  Country: EG (occurrence: EG)
  Receive Date: 20230224
  Receipt Date: 20230414
  Transmission Date: 20230722
  Serious: Yes (Other)
  Sender: FDA-Public Use
  Company Number: EG-002147023-NVSC2023EG040617

PATIENT
  Age: 61 Year
  Sex: Female

DRUGS (10)
  1. GILENYA [Suspect]
     Active Substance: FINGOLIMOD HYDROCHLORIDE
     Indication: Multiple sclerosis
     Dosage: 1 DOSAGE FORM, QD
     Route: 048
     Dates: start: 20221102
  2. NEUROMAX [Concomitant]
     Indication: Ill-defined disorder
     Dosage: 1 DOSAGE FORM, QW
     Route: 065
     Dates: start: 2020
  3. NEUROMAX [Concomitant]
     Dosage: FORMULATION: AMPOULE) (TWICE EVERY WEEK AND THEN ONCE EVERY WEEK)
     Route: 065
     Dates: start: 202211
  4. OSSOFORTIN [Concomitant]
     Indication: Bone disorder
     Dosage: 1 DOSAGE FORM, QD, DURING MEAL
     Route: 048
     Dates: start: 20221102
  5. OSSOFORTIN [Concomitant]
     Indication: Multiple sclerosis
  6. CEREBROLYSIN [Concomitant]
     Active Substance: CEREBROLYSIN
     Indication: Product used for unknown indication
     Dosage: (TWICE WEEKLY INTERMITTANTLY)
     Route: 065
     Dates: start: 2020
  7. CEREBROLYSIN [Concomitant]
     Active Substance: CEREBROLYSIN
     Dosage: Q2W (FORMULATION: AMPOULE)
     Route: 065
     Dates: start: 202211
  8. CITALO [Concomitant]
     Indication: Antidepressant therapy
     Dosage: 0.5 DOSAGE FORM, QD
     Route: 048
     Dates: start: 2020
  9. CITALO [Concomitant]
     Dosage: 0.5 DOSAGE FORM, QD
     Route: 048
     Dates: start: 202211
  10. EXFORGE [Concomitant]
     Active Substance: AMLODIPINE BESYLATE\VALSARTAN
     Indication: Hypertension
     Dosage: 1 DOSAGE FORM, QD
     Route: 048
     Dates: start: 2013

REACTIONS (8)
  - Multiple sclerosis relapse [Not Recovered/Not Resolved]
  - Renal pain [Recovered/Resolved]
  - Pain in extremity [Not Recovered/Not Resolved]
  - Musculoskeletal stiffness [Not Recovered/Not Resolved]
  - Chills [Not Recovered/Not Resolved]
  - Balance disorder [Not Recovered/Not Resolved]
  - Movement disorder [Not Recovered/Not Resolved]
  - Frustration tolerance decreased [Not Recovered/Not Resolved]

NARRATIVE: CASE EVENT DATE: 20221102
